FAERS Safety Report 7929212-7 (Version None)
Quarter: 2011Q4

REPORT INFORMATION
  Report Type: 
  Country: None (occurrence: None)
  Receive Date: 20111121
  Receipt Date: 20111114
  Transmission Date: 20120403
  Serious: Yes (Hospitalization, Other)
  Sender: FDA-Public Use
  Company Number: US-AMGEN-USASP2011059935

PATIENT
  Age: 61 Year
  Sex: Male

DRUGS (1)
  1. ENBREL [Suspect]
     Indication: RHEUMATOID ARTHRITIS
     Dosage: 50 MG, QWK
     Dates: start: 20111028

REACTIONS (6)
  - DIARRHOEA [None]
  - HEADACHE [None]
  - NASAL DISCOMFORT [None]
  - THROMBOSIS [None]
  - EYE PRURITUS [None]
  - ULCER [None]
